FAERS Safety Report 9002183 (Version 1)
Quarter: 2013Q1

REPORT INFORMATION
  Report Type: Spontaneous
  Country: US (occurrence: None)
  Receive Date: 20130103
  Receipt Date: 20130103
  Transmission Date: 20140127
  Serious: Yes (Disabling)
  Sender: FDA-Public Use
  Company Number: None

PATIENT
  Age: 33 Year
  Sex: Female
  Weight: 57.15 kg

DRUGS (1)
  1. DEPO PROVERA [Suspect]
     Dosage: UNKNOWN  EVERY 3 MONTHS  SQ
     Route: 058
     Dates: start: 19950101, end: 20000101

REACTIONS (2)
  - Ankle fracture [None]
  - Osteopenia [None]
